FAERS Safety Report 8286850 (Version 6)
Quarter: 2016Q3

REPORT INFORMATION
  Report Type: Spontaneous
  Country: US (occurrence: US)
  Receive Date: 20111213
  Receipt Date: 20160927
  Transmission Date: 20161109
  Serious: Yes (Disabling, Other)
  Sender: FDA-Public Use
  Company Number: US-BAYER-2011-118400

PATIENT
  Age: 31 Year
  Sex: Male

DRUGS (15)
  1. AVELOX [Suspect]
     Active Substance: MOXIFLOXACIN HYDROCHLORIDE
     Indication: BRONCHITIS
     Dosage: 400 MG, QD
     Route: 048
     Dates: start: 20111025, end: 20111030
  2. CITALOPRAM [Concomitant]
     Active Substance: CITALOPRAM HYDROBROMIDE
     Dosage: UNK
  3. METHYLPHENIDATE. [Concomitant]
     Active Substance: METHYLPHENIDATE
     Dosage: 10 MG, UNK
     Route: 048
  4. CELEXA [Concomitant]
     Active Substance: CITALOPRAM HYDROBROMIDE
  5. ZOLOFT [Concomitant]
     Active Substance: SERTRALINE HYDROCHLORIDE
     Dosage: UNK
  6. KLONOPIN [Concomitant]
     Active Substance: CLONAZEPAM
     Dosage: UNK
  7. RISPERIDONE. [Concomitant]
     Active Substance: RISPERIDONE
     Dosage: UNK
  8. ABILIFY [Concomitant]
     Active Substance: ARIPIPRAZOLE
     Dosage: 5 MG, QD
  9. LORAZEPAM. [Concomitant]
     Active Substance: LORAZEPAM
     Dosage: 20 MG, UNK
     Route: 048
  10. ALBUTEROL. [Concomitant]
     Active Substance: ALBUTEROL
     Dosage: 90 MCG/ACTUATION
  11. AMITRIPTYLINE [Concomitant]
     Active Substance: AMITRIPTYLINE
     Dosage: 50 MG, HRS
  12. PROZAC [Concomitant]
     Active Substance: FLUOXETINE HYDROCHLORIDE
     Dosage: 10 MG, QD
  13. PANADOL ACTIFAST [PARACETAMOL] [Concomitant]
     Dosage: LOW DOSE TAB 1 HS
  14. SEROQUEL [Concomitant]
     Active Substance: QUETIAPINE FUMARATE
     Dosage: UNK
  15. CICLESONIDE [Concomitant]
     Active Substance: CICLESONIDE
     Dosage: 50 MG, UNK
     Route: 045

REACTIONS (36)
  - Psychotic disorder [Not Recovered/Not Resolved]
  - Emotional distress [None]
  - Personality disorder [None]
  - Anxiety [Recovering/Resolving]
  - Amnesia [None]
  - Depression [Recovering/Resolving]
  - Activities of daily living impaired [None]
  - Burning sensation [None]
  - Tremor [None]
  - Panic attack [None]
  - Disturbance in attention [None]
  - Headache [None]
  - Muscle twitching [None]
  - Insomnia [None]
  - Arthralgia [None]
  - Arthralgia [Not Recovered/Not Resolved]
  - Tremor [Not Recovered/Not Resolved]
  - Bedridden [None]
  - Metamorphopsia [None]
  - Pain [None]
  - Impaired work ability [None]
  - Nausea [None]
  - Dyspnoea [None]
  - Pain in extremity [None]
  - Tendon pain [None]
  - Autonomic nervous system imbalance [None]
  - Palpitations [Not Recovered/Not Resolved]
  - Dizziness [Not Recovered/Not Resolved]
  - Hypoaesthesia [None]
  - Insomnia [Not Recovered/Not Resolved]
  - Tinnitus [None]
  - Dry mouth [None]
  - Myalgia [None]
  - Dry eye [None]
  - Injury [None]
  - Impaired work ability [None]

NARRATIVE: CASE EVENT DATE: 201202
